FAERS Safety Report 11814614 (Version 1)
Quarter: 2015Q4

REPORT INFORMATION
  Report Type: Report from Study
  Country: US (occurrence: US)
  Receive Date: 20151209
  Receipt Date: 20151209
  Transmission Date: 20160305
  Serious: Yes (Other)
  Sender: FDA-Public Use
  Company Number: US-ABBVIE-15K-163-1513639-00

PATIENT
  Sex: Male
  Weight: 136.2 kg

DRUGS (2)
  1. ELAVIL [Suspect]
     Active Substance: AMITRIPTYLINE HYDROCHLORIDE
     Indication: HYPERTENSION
     Route: 065
  2. HUMIRA [Suspect]
     Active Substance: ADALIMUMAB
     Indication: CROHN^S DISEASE
     Route: 058
     Dates: start: 2007

REACTIONS (15)
  - Joint effusion [Recovered/Resolved]
  - Night sweats [Recovered/Resolved]
  - Irritability [Recovered/Resolved]
  - Back injury [Unknown]
  - Large intestinal haemorrhage [Recovered/Resolved]
  - Abdominal pain [Recovered/Resolved]
  - Constipation [Recovered/Resolved]
  - Diarrhoea [Recovered/Resolved]
  - Musculoskeletal pain [Not Recovered/Not Resolved]
  - Large intestine perforation [Recovered/Resolved]
  - Arthritis [Not Recovered/Not Resolved]
  - Joint injury [Unknown]
  - Pain [Recovered/Resolved]
  - Hypertension [Recovered/Resolved]
  - Post procedural diarrhoea [Not Recovered/Not Resolved]

NARRATIVE: CASE EVENT DATE: 2008
